FAERS Safety Report 4789262-9 (Version None)
Quarter: 2005Q3

REPORT INFORMATION
  Report Type: 
  Country: None (occurrence: None)
  Receive Date: 20050929
  Receipt Date: 20050804
  Transmission Date: 20060218
  Serious: No
  Sender: FDA-Public Use
  Company Number: 05P-163-0307481-00

PATIENT
  Age: 65 Year
  Sex: Male
  Weight: 85.7298 kg

DRUGS (12)
  1. HUMIRA [Suspect]
     Indication: RHEUMATOID ARTHRITIS
     Dosage: 40 MG, 1 IN 2 WK, SUBCUTANEOUS
     Route: 058
     Dates: start: 20020101
  2. LEVOTHYROXINE SODIUM [Concomitant]
  3. ESOMEPRAZOLE [Concomitant]
  4. QUINAPRIL HCL [Concomitant]
  5. ATENOLOL [Concomitant]
  6. FOLIC ACID [Concomitant]
  7. OCUVITE [Concomitant]
  8. PREDNISONE [Concomitant]
  9. ALTOPREV [Concomitant]
  10. VICODIN [Concomitant]
  11. ASPIRIN [Concomitant]
  12. DOCUSATE SODIUM [Concomitant]

REACTIONS (1)
  - NASOPHARYNGITIS [None]
